FAERS Safety Report 6568444-X (Version None)
Quarter: 2010Q1

REPORT INFORMATION
  Report Type: 
  Country: None (occurrence: None)
  Receive Date: 20100203
  Receipt Date: 20100129
  Transmission Date: 20100710
  Serious: Yes (Other)
  Sender: FDA-Public Use
  Company Number: A0839013A

PATIENT
  Age: 45 Year
  Sex: Female
  Weight: 68.2 kg

DRUGS (1)
  1. IMITREX [Suspect]
     Indication: HEADACHE
     Dosage: .5TAB PER DAY
     Route: 048

REACTIONS (7)
  - DRUG PRESCRIBING ERROR [None]
  - INTERMITTENT CLAUDICATION [None]
  - PARAESTHESIA [None]
  - PERIPHERAL VASCULAR DISORDER [None]
  - RED BLOOD CELL SEDIMENTATION RATE INCREASED [None]
  - VASCULITIS [None]
  - VASOSPASM [None]
